FAERS Safety Report 7992715-3 (Version None)
Quarter: 2011Q4

REPORT INFORMATION
  Report Type: 
  Country: None (occurrence: None)
  Receive Date: 20111219
  Receipt Date: 20110721
  Transmission Date: 20120403
  Serious: No
  Sender: FDA-Public Use
  Company Number: US-ASTRAZENECA-2011SE44165

PATIENT
  Sex: Male

DRUGS (6)
  1. CRESTOR [Suspect]
     Route: 048
  2. CRESTOR [Suspect]
     Route: 048
  3. SYMBICORT [Concomitant]
  4. CRESTOR [Suspect]
     Dosage: HALF TABLET
     Route: 048
  5. LIPITOR [Concomitant]
  6. ZOCOR [Concomitant]

REACTIONS (3)
  - ADVERSE EVENT [None]
  - WRONG TECHNIQUE IN DRUG USAGE PROCESS [None]
  - BLOOD CHOLESTEROL ABNORMAL [None]
